FAERS Safety Report 9158350 (Version 1)
Quarter: 2013Q1

REPORT INFORMATION
  Report Type: Spontaneous
  Country: DK (occurrence: None)
  Receive Date: 20130211
  Receipt Date: 20130211
  Transmission Date: 20140127
  Serious: Yes (Other)
  Sender: FDA-Public Use
  Company Number: 2013MA000988

PATIENT
  Age: 65 Year
  Sex: Female

DRUGS (6)
  1. SERTRALINE HYDROCHLORIDE TABLETS, 50 MG (BASE) (AELLC) (SERTRALINE) [Suspect]
     Indication: DEPRESSION
     Route: 048
     Dates: start: 20120405, end: 20121125
  2. PARACETAMOL [Concomitant]
  3. CLOPIDOGREL [Concomitant]
  4. AMLODIPINE [Concomitant]
  5. FUROSEMIDE [Concomitant]
  6. ATORVASTATIN [Concomitant]

REACTIONS (1)
  - Contusion [None]
